FAERS Safety Report 4818428-4 (Version None)
Quarter: 2005Q3

REPORT INFORMATION
  Report Type: 
  Country: None (occurrence: None)
  Receive Date: 20050929
  Receipt Date: 20050714
  Transmission Date: 20060218
  Serious: No
  Sender: FDA-Public Use
  Company Number: 05P-163-0305802-00

PATIENT
  Age: 52 Year
  Sex: Female
  Weight: 83.0083 kg

DRUGS (13)
  1. HUMIRA [Suspect]
     Indication: RHEUMATOID ARTHRITIS
     Dosage: 40 MG, 1 IN 2 WK, SUBCUTANEOUS
     Route: 058
     Dates: start: 20050501, end: 20050701
  2. GABAPENTIN [Concomitant]
  3. METHOTREXATE [Concomitant]
  4. DIAZIDE [Concomitant]
  5. BELLAMINE [Concomitant]
  6. METHADONE [Concomitant]
  7. HYDROMORPHONE [Concomitant]
  8. ARTHROTEC [Concomitant]
  9. TRAZODONE HCL [Concomitant]
  10. DIAZEPAM [Concomitant]
  11. FOLIC ACID [Concomitant]
  12. FAMOTIDINE [Concomitant]
  13. DOCUSATE SODIUM [Concomitant]

REACTIONS (5)
  - ANOREXIA [None]
  - DIZZINESS [None]
  - LOSS OF CONSCIOUSNESS [None]
  - SKULL FRACTURE [None]
  - WEIGHT DECREASED [None]
